FAERS Safety Report 11795168 (Version 1)
Quarter: 2015Q4

REPORT INFORMATION
  Report Type: Report from Study
  Country: US (occurrence: US)
  Receive Date: 20151202
  Receipt Date: 20151202
  Transmission Date: 20160305
  Serious: Yes (Other)
  Sender: FDA-Public Use
  Company Number: US-BAXALTA-2015BLT002907

PATIENT
  Age: 6 Year
  Sex: Male

DRUGS (3)
  1. COAGULATION FACTOR IX HUMAN [Suspect]
     Active Substance: COAGULATION FACTOR IX HUMAN
     Indication: PROPHYLAXIS
  2. COAGULATION FACTOR IX HUMAN [Suspect]
     Active Substance: COAGULATION FACTOR IX HUMAN
     Indication: FACTOR IX DEFICIENCY
     Route: 065
  3. COAGULATION FACTOR IX HUMAN [Suspect]
     Active Substance: COAGULATION FACTOR IX HUMAN
     Indication: HAEMORRHAGE

REACTIONS (5)
  - Educational problem [None]
  - Impaired quality of life [Unknown]
  - Activities of daily living impaired [Unknown]
  - Haemarthrosis [Unknown]
  - Soft tissue haemorrhage [Unknown]
